FAERS Safety Report 6360745-3 (Version None)
Quarter: 2009Q3

REPORT INFORMATION
  Report Type: 
  Country: None (occurrence: None)
  Receive Date: 20090918
  Receipt Date: 20090911
  Transmission Date: 20100115
  Serious: No
  Sender: FDA-Public Use
  Company Number: CA-JNJFOC-20090904277

PATIENT
  Sex: Female

DRUGS (5)
  1. DURAGESIC-100 [Suspect]
     Indication: DRUG USE FOR UNKNOWN INDICATION
     Route: 062
     Dates: start: 20090905
  2. PERCOCET [Concomitant]
  3. VALIUM [Concomitant]
  4. CESAMET [Concomitant]
  5. WELLBUTRIN [Concomitant]

REACTIONS (4)
  - BLISTER [None]
  - ERYTHEMA [None]
  - PRURITUS [None]
  - WRONG TECHNIQUE IN DRUG USAGE PROCESS [None]
